FAERS Safety Report 18666338 (Version 1)
Quarter: 2020Q4

REPORT INFORMATION
  Report Type: Spontaneous
  Country: US (occurrence: US)
  Receive Date: 20201226
  Receipt Date: 20201226
  Transmission Date: 20210114
  Serious: No
  Sender: FDA-Public Use
  Company Number: US-009507513-2012USA008576

PATIENT
  Sex: Male
  Weight: 15.8 kg

DRUGS (2)
  1. TACROLIMUS. [Suspect]
     Active Substance: TACROLIMUS
     Indication: ECZEMA
     Dosage: 45 GRAM, 2XDAY, PRN
     Dates: start: 20200224
  2. ELOCON [Suspect]
     Active Substance: MOMETASONE FUROATE
     Indication: ECZEMA
     Dosage: 40 GRAMS, 2XDAY FOR 5 DAYS THEN PRN

REACTIONS (1)
  - Therapeutic product effect decreased [Unknown]
